FAERS Safety Report 23049018 (Version 1)
Quarter: 2023Q4

REPORT INFORMATION
  Report Type: Spontaneous
  Country: US (occurrence: None)
  Receive Date: 20231006
  Receipt Date: 20231006
  Transmission Date: 20240110
  Serious: Yes (Hospitalization)
  Sender: FDA-Public Use
  Company Number: None

PATIENT
  Sex: Female

DRUGS (23)
  1. AMPYRA [Suspect]
     Active Substance: DALFAMPRIDINE
     Indication: Multiple sclerosis
     Dosage: FREQUENCY : TWICE A DAY;?
     Route: 048
     Dates: start: 20150814
  2. AUBAGIO [Concomitant]
     Active Substance: TERIFLUNOMIDE
  3. AUBAGIO [Concomitant]
     Active Substance: TERIFLUNOMIDE
  4. BACLOFEN [Concomitant]
     Active Substance: BACLOFEN
  5. BIOTIN [Concomitant]
     Active Substance: BIOTIN
  6. BOTOX [Concomitant]
     Active Substance: ONABOTULINUMTOXINA
  7. BOTOX [Concomitant]
     Active Substance: ONABOTULINUMTOXINA
  8. DALFAMPRIDINE [Concomitant]
     Active Substance: DALFAMPRIDINE
  9. DOXAZOSIN [Concomitant]
     Active Substance: DOXAZOSIN MESYLATE
  10. DULOXETINE [Concomitant]
     Active Substance: DULOXETINE
  11. FLUCONAZOLE [Concomitant]
     Active Substance: FLUCONAZOLE
  12. FLUCONAZOLE [Concomitant]
     Active Substance: FLUCONAZOLE
  13. ACETAMINOPHEN\HYDROCODONE [Concomitant]
     Active Substance: ACETAMINOPHEN\HYDROCODONE
  14. ACETAMINOPHEN\HYDROCODONE [Concomitant]
     Active Substance: ACETAMINOPHEN\HYDROCODONE
  15. IBUPROFEN [Concomitant]
     Active Substance: IBUPROFEN
  16. IRON 21/7 MIS [Concomitant]
  17. LIDOCAINE PAD [Concomitant]
  18. MEDROXYPR AC [Concomitant]
  19. OXYBUTYNIN [Concomitant]
     Active Substance: OXYBUTYNIN
  20. OXYCODONE [Concomitant]
     Active Substance: OXYCODONE
  21. VENLAFAXINE [Concomitant]
     Active Substance: VENLAFAXINE HYDROCHLORIDE
  22. VITAMIN D [Concomitant]
     Active Substance: VITAMIN D NOS
  23. UNSPECIFIED INGREDIENT [Concomitant]
     Active Substance: UNSPECIFIED INGREDIENT

REACTIONS (2)
  - Cerebrovascular accident [None]
  - Therapy cessation [None]
